FAERS Safety Report 21790092 (Version 1)
Quarter: 2022Q4

REPORT INFORMATION
  Report Type: Spontaneous
  Country: DE (occurrence: DE)
  Receive Date: 20221228
  Receipt Date: 20221228
  Transmission Date: 20230112
  Serious: Yes (Death)
  Sender: FDA-Public Use
  Company Number: DE-DCGMA-22199773

PATIENT
  Age: 91 Year
  Sex: Male

DRUGS (1)
  1. PAXLOVID [Suspect]
     Active Substance: NIRMATRELVIR\RITONAVIR
     Indication: COVID-19 treatment
     Dosage: 150/100 MG 1-0-1 PER DAY
     Dates: start: 20220921, end: 20220923

REACTIONS (3)
  - Visual impairment [Fatal]
  - Nausea [Fatal]
  - Dizziness [Fatal]

NARRATIVE: CASE EVENT DATE: 20220923
